FAERS Safety Report 24561837 (Version 2)
Quarter: 2024Q4

REPORT INFORMATION
  Report Type: Spontaneous
  Country: CH (occurrence: CH)
  Receive Date: 20241029
  Receipt Date: 20241104
  Transmission Date: 20250115
  Serious: Yes (Other)
  Sender: PFIZER
  Company Number: None

PATIENT
  Age: 81 Year
  Sex: Female

DRUGS (10)
  1. PANTOZOL [Suspect]
     Active Substance: PANTOPRAZOLE SODIUM
     Dosage: 20 MG, 1X/DAY
     Route: 065
     Dates: end: 20240627
  2. OLMESARTAN [Suspect]
     Active Substance: OLMESARTAN
     Dosage: 20 MG, 1X/DAY
     Route: 065
     Dates: end: 20240628
  3. OLMESARTAN [Suspect]
     Active Substance: OLMESARTAN
     Dosage: 10 MG, 1X/DAY
     Route: 065
     Dates: start: 20240629
  4. GINKGO [Suspect]
     Active Substance: GINKGO
     Dosage: 240 MG, 1X/DAY
     Route: 048
     Dates: end: 20240627
  5. DULOXETINE [Suspect]
     Active Substance: DULOXETINE
     Indication: Sleep disorder
     Dosage: 30 MG, 1X/DAY
     Route: 065
     Dates: start: 202401, end: 20240627
  6. DULOXETINE [Suspect]
     Active Substance: DULOXETINE
     Indication: Flat affect
     Dosage: 15 MG, 1X/DAY
     Route: 065
     Dates: start: 20240627
  7. ZOLPIDEM TARTRATE [Concomitant]
     Active Substance: ZOLPIDEM TARTRATE
     Dosage: 5 MG
  8. CHONDROITIN [Concomitant]
     Active Substance: CHONDROITIN
     Dosage: UNK
  9. METFORMIN [Concomitant]
     Active Substance: METFORMIN HYDROCHLORIDE
     Dosage: 500 MG, 2X/DAY
  10. ATORVASTATIN [Concomitant]
     Active Substance: ATORVASTATIN
     Dosage: 40 MG, 1X/DAY

REACTIONS (2)
  - Inappropriate antidiuretic hormone secretion [Recovering/Resolving]
  - Hyponatraemia [Recovering/Resolving]

NARRATIVE: CASE EVENT DATE: 20240627
